FAERS Safety Report 23073859 (Version 1)
Quarter: 2023Q4

REPORT INFORMATION
  Report Type: Spontaneous
  Country: US (occurrence: None)
  Receive Date: 20231016
  Receipt Date: 20231016
  Transmission Date: 20240109
  Serious: Yes (Hospitalization)
  Sender: FDA-Public Use
  Company Number: None

PATIENT
  Sex: Female

DRUGS (2)
  1. EPOGEN [Suspect]
     Active Substance: ERYTHROPOIETIN
     Dosage: OTHER STRENGTH : 10,000 U/ML;?OTHER QUANTITY : 10000 UNIT/ML;?FREQUENCY : WEEKLY;?
     Route: 058
     Dates: start: 20230311
  2. MULTIVITAMIN CHW CHILDREN [Concomitant]

REACTIONS (1)
  - Therapy interrupted [None]
